FAERS Safety Report 12876319 (Version 1)
Quarter: 2016Q4

REPORT INFORMATION
  Report Type: Spontaneous
  Country: US (occurrence: US)
  Receive Date: 20161024
  Receipt Date: 20161024
  Transmission Date: 20170207
  Serious: No
  Sender: FDA-Public Use
  Company Number: US-BAYER-2016-203684

PATIENT
  Age: 77 Year
  Sex: Male
  Weight: 175 kg

DRUGS (1)
  1. MIRALAX [Suspect]
     Active Substance: POLYETHYLENE GLYCOL 3350
     Indication: GASTROINTESTINAL DISORDER
     Dosage: LESS THAN A TEASPOON QD FOR MANY YEARS
     Route: 048

REACTIONS (3)
  - Abnormal faeces [None]
  - Wrong technique in product usage process [None]
  - Product use issue [None]
